FAERS Safety Report 10471503 (Version 2)
Quarter: 2014Q4

REPORT INFORMATION
  Report Type: Spontaneous
  Country: US (occurrence: US)
  Receive Date: 20140923
  Receipt Date: 20141030
  Transmission Date: 20150528
  Serious: No
  Sender: FDA-Public Use
  Company Number: US-PFIZER INC-2014261018

PATIENT
  Sex: Female

DRUGS (1)
  1. RELPAX [Suspect]
     Active Substance: ELETRIPTAN HYDROBROMIDE
     Dosage: UNK

REACTIONS (4)
  - Bronchitis [Unknown]
  - Asthma [Unknown]
  - Sinus disorder [Unknown]
  - Malaise [Unknown]

NARRATIVE: CASE EVENT DATE: 201409
